FAERS Safety Report 9163111 (Version 2)
Quarter: 2013Q1

REPORT INFORMATION
  Report Type: Spontaneous
  Country: ES (occurrence: ES)
  Receive Date: 20130314
  Receipt Date: 20130327
  Transmission Date: 20140127
  Serious: No
  Sender: FDA-Public Use
  Company Number: ES-OTSUKA-EU-2013-10052

PATIENT
  Age: 73 Year
  Sex: Male

DRUGS (9)
  1. PLETAL [Suspect]
     Indication: ARTERIAL DISORDER
     Dosage: 100 MG MILLIGRAM(S), UNKNOWN
     Route: 048
     Dates: start: 20130220
  2. LYRICA [Concomitant]
     Dosage: UNK
  3. CLOPIDOGREL [Concomitant]
     Dosage: UNK
  4. TROMALYT [Concomitant]
     Dosage: UNK
  5. OLMETEC PLUS [Concomitant]
     Dosage: UNK
  6. CRESTOR [Concomitant]
     Dosage: UNK
  7. RIVOTRIL [Concomitant]
     Dosage: UNK
  8. NOVOMIX [Concomitant]
     Dosage: UNK
  9. LANTUS [Concomitant]
     Dosage: UNK

REACTIONS (1)
  - Purpura [Unknown]
